FAERS Safety Report 7795683-2 (Version None)
Quarter: 2011Q4

REPORT INFORMATION
  Report Type: 
  Country: None (occurrence: None)
  Receive Date: 20111004
  Receipt Date: 20110930
  Transmission Date: 20120403
  Serious: Yes (Hospitalization)
  Sender: FDA-Public Use
  Company Number: DE-GLAXOSMITHKLINE-B0752551A

PATIENT
  Sex: Male
  Weight: 95 kg

DRUGS (4)
  1. PROPAFENONE HCL [Suspect]
     Indication: PRODUCT USED FOR UNKNOWN INDICATION
     Dosage: 6TAB PER DAY
     Route: 048
     Dates: start: 20110929
  2. ALCOHOL [Concomitant]
     Route: 048
  3. ZOPLICONE [Concomitant]
     Dosage: 7TAB PER DAY
     Route: 048
  4. VALPROATE SODIUM [Concomitant]
     Route: 048

REACTIONS (1)
  - SUICIDE ATTEMPT [None]
